FAERS Safety Report 4895977-4 (Version None)
Quarter: 2006Q1

REPORT INFORMATION
  Report Type: 
  Country: None (occurrence: None)
  Receive Date: 20060130
  Receipt Date: 20060118
  Transmission Date: 20060701
  Serious: Yes (Hospitalization)
  Sender: FDA-Public Use
  Company Number: SE-MERCK-0601SWE00011

PATIENT
  Age: 70 Year
  Sex: Male

DRUGS (2)
  1. FOSAMAX [Suspect]
     Indication: BONE DISORDER
     Route: 048
     Dates: start: 20051013, end: 20051122
  2. CALCIUM CARBONATE [Concomitant]
     Route: 065

REACTIONS (1)
  - ATRIAL FLUTTER [None]
